FAERS Safety Report 7875844-4 (Version None)
Quarter: 2011Q4

REPORT INFORMATION
  Report Type: 
  Country: None (occurrence: None)
  Receive Date: 20111031
  Receipt Date: 20111019
  Transmission Date: 20120403
  Serious: Yes (Other)
  Sender: FDA-Public Use
  Company Number: PHHY2011CA75412

PATIENT
  Sex: Female

DRUGS (3)
  1. TALWIN [Concomitant]
     Dosage: UNK UKN, UNK
  2. APO-SULFATRIM [Concomitant]
     Dosage: 800MG/100MG
  3. SANDOSTATIN LAR [Suspect]
     Indication: CROHN'S DISEASE
     Dosage: 30 MG, ONCE A MONTH
     Route: 030
     Dates: start: 20060315

REACTIONS (4)
  - DYSURIA [None]
  - PYREXIA [None]
  - HAEMOGLOBIN DECREASED [None]
  - URETHRAL INJURY [None]
